FAERS Safety Report 25545389 (Version 1)
Quarter: 2025Q3

REPORT INFORMATION
  Report Type: Spontaneous
  Country: KR (occurrence: KR)
  Receive Date: 20250711
  Receipt Date: 20250711
  Transmission Date: 20251020
  Serious: Yes (Other)
  Sender: PFIZER
  Company Number: KR-PFIZER INC-202500132947

PATIENT
  Age: 50 Year
  Sex: Female
  Weight: 45 kg

DRUGS (2)
  1. ZITHROMAX [Suspect]
     Active Substance: AZITHROMYCIN DIHYDRATE
     Indication: Drug eruption
     Dosage: 1 DF, 1X/DAY
     Dates: start: 20220625, end: 20220630
  2. METRONIDAZOLE [Suspect]
     Active Substance: METRONIDAZOLE
     Indication: Drug eruption
     Dosage: 2 DF, 3X/DAY
     Dates: start: 20220625, end: 20220630

REACTIONS (4)
  - Dermatitis bullous [Recovered/Resolved]
  - Pruritus [Recovered/Resolved]
  - Urticaria [Recovered/Resolved]
  - Off label use [Unknown]

NARRATIVE: CASE EVENT DATE: 20220625
